FAERS Safety Report 5186564-1 (Version None)
Quarter: 2006Q4

REPORT INFORMATION
  Report Type: 
  Country: None (occurrence: None)
  Receive Date: 20061213
  Receipt Date: 20061129
  Transmission Date: 20070319
  Serious: Yes (Other)
  Sender: FDA-Public Use
  Company Number: TPA2006A02138

PATIENT
  Age: 63 Year
  Sex: Female

DRUGS (3)
  1. ACTOS [Suspect]
     Indication: DIABETES MELLITUS
     Dosage: PER ORAL
     Route: 048
  2. GLUCOTROL XL [Suspect]
     Indication: DIABETES MELLITUS
  3. AARON (ANTI-DIABETICS) (UNKNOWN) [Suspect]
     Indication: DIABETES MELLITUS

REACTIONS (3)
  - DIABETIC COMA [None]
  - DIZZINESS [None]
  - VOMITING [None]
